FAERS Safety Report 15175600 (Version 1)
Quarter: 2018Q3

REPORT INFORMATION
  Report Type: Report from Study
  Country: US (occurrence: US)
  Receive Date: 20180720
  Receipt Date: 20180720
  Transmission Date: 20181010
  Serious: Yes (Hospitalization)
  Sender: FDA-Public Use
  Company Number: US-BAYER-2018-119249

PATIENT
  Age: 66 Year
  Sex: Male

DRUGS (10)
  1. VITAMIN D3 [Concomitant]
     Active Substance: CHOLECALCIFEROL
  2. DOCUSATE [Concomitant]
     Active Substance: DOCUSATE
  3. MELATONIN [Concomitant]
     Active Substance: MELATONIN
  4. NEXAVAR [Suspect]
     Active Substance: SORAFENIB
     Indication: ACUTE MYELOID LEUKAEMIA RECURRENT
     Dosage: 400 MG, BID
     Route: 048
     Dates: start: 20180611, end: 20180622
  5. OMEPRAZOLE. [Concomitant]
     Active Substance: OMEPRAZOLE
  6. OXYCODONE [Concomitant]
     Active Substance: OXYCODONE
  7. ALLOPURINOL. [Concomitant]
     Active Substance: ALLOPURINOL
  8. TRAMADOL. [Concomitant]
     Active Substance: TRAMADOL
  9. LASIX [Concomitant]
     Active Substance: FUROSEMIDE
  10. GABAPENTIN. [Concomitant]
     Active Substance: GABAPENTIN

REACTIONS (8)
  - Gastric ulcer [None]
  - Stomatitis [None]
  - Platelet count decreased [Unknown]
  - White blood cell count decreased [Unknown]
  - Oesophagitis [None]
  - Rash [Unknown]
  - Product use in unapproved indication [None]
  - Off label use [None]

NARRATIVE: CASE EVENT DATE: 2018
